FAERS Safety Report 10984518 (Version 1)
Quarter: 2015Q1

REPORT INFORMATION
  Report Type: Spontaneous
  Country: US (occurrence: None)
  Receive Date: 20150226
  Receipt Date: 20150226
  Transmission Date: 20150721
  Serious: Yes (Hospitalization, Other)
  Sender: FDA-Public Use
  Company Number: TPA2013A07091

PATIENT
  Age: 63 Year
  Sex: Male
  Weight: 79.8 kg

DRUGS (18)
  1. ACTOS [Suspect]
     Active Substance: PIOGLITAZONE HYDROCHLORIDE
     Indication: TYPE 2 DIABETES MELLITUS
     Dates: start: 20090417, end: 201203
  2. METOPROLOL [Concomitant]
     Active Substance: METOPROLOL
  3. CLOPIDOGREL [Concomitant]
     Active Substance: CLOPIDOGREL BISULFATE
  4. NITROGLYCERIN (GLYCERYL TRINITRATE) [Concomitant]
     Active Substance: NITROGLYCERIN
  5. METFORMIN [Concomitant]
     Active Substance: METFORMIN HYDROCHLORIDE
  6. LASIX [Concomitant]
     Active Substance: FUROSEMIDE
  7. FLUOXETINE (FLUOXETINE)??? [Concomitant]
  8. CHLORTHALIDONE (CHLORTALIDONE) [Concomitant]
     Active Substance: CHLORTHALIDONE
  9. GLIPIZIDE. [Concomitant]
     Active Substance: GLIPIZIDE
  10. NIACIN (NICOTINIC ACID) [Concomitant]
  11. LISINOPRIL. [Concomitant]
     Active Substance: LISINOPRIL
  12. PROZAC /00724401/ (FLUOXETINE) [Concomitant]
  13. VARDENAFIL [Concomitant]
     Active Substance: VARDENAFIL
  14. QUETIAPINE [Concomitant]
     Active Substance: QUETIAPINE
  15. PRAVASTATIN [Concomitant]
     Active Substance: PRAVASTATIN\PRAVASTATIN SODIUM
  16. TOPROL XL [Concomitant]
     Active Substance: METOPROLOL SUCCINATE
  17. ROSUVASTATIN [Concomitant]
     Active Substance: ROSUVASTATIN
  18. ASPIRIN (ACETYLSALICYLIC ACID) TABLET [Concomitant]
     Active Substance: ASPIRIN

REACTIONS (8)
  - Headache [None]
  - Coronary artery disease [None]
  - Dysuria [None]
  - Chest pain [None]
  - Bladder transitional cell carcinoma [None]
  - Muscle spasms [None]
  - Myalgia [None]
  - Drug ineffective [None]

NARRATIVE: CASE EVENT DATE: 201211
